FAERS Safety Report 8075519-5 (Version None)
Quarter: 2012Q1

REPORT INFORMATION
  Report Type: 
  Country: None (occurrence: None)
  Receive Date: 20120127
  Receipt Date: 20120119
  Transmission Date: 20120608
  Serious: Yes (Hospitalization)
  Sender: FDA-Public Use
  Company Number: US-BRISTOL-MYERS SQUIBB COMPANY-16357600

PATIENT
  Age: 35 Year
  Sex: Female
  Weight: 87 kg

DRUGS (3)
  1. LEUKINE [Suspect]
     Indication: MALIGNANT MELANOMA
     Dosage: LAST ADMINISTERED DT:02JAN2012,NO OF COURSES:12
     Dates: start: 20110504
  2. PROLEUKIN [Suspect]
  3. IPILIMUMAB [Suspect]
     Indication: MALIGNANT MELANOMA
     Dosage: LAST ADMINISTERED DT:19DEC2011,NO OF COURSES:12
     Dates: start: 20110504

REACTIONS (1)
  - DYSPNOEA [None]
